FAERS Safety Report 9119708 (Version 1)
Quarter: 2013Q1

REPORT INFORMATION
  Report Type: Spontaneous
  Country: US (occurrence: US)
  Receive Date: 20130226
  Receipt Date: 20130226
  Transmission Date: 20140127
  Serious: No
  Sender: FDA-Public Use
  Company Number: US-009507513-1302USA010277

PATIENT
  Sex: 0

DRUGS (1)
  1. PROVENTIL [Suspect]
     Dosage: TWO PUFF EVERY 6 HOURS
     Route: 048
     Dates: start: 20130219

REACTIONS (3)
  - Drug dose omission [Unknown]
  - Device malfunction [Unknown]
  - No adverse event [Unknown]
